FAERS Safety Report 6354078-9 (Version None)
Quarter: 2009Q3

REPORT INFORMATION
  Report Type: 
  Country: None (occurrence: None)
  Receive Date: 20090914
  Receipt Date: 20070514
  Transmission Date: 20100115
  Serious: Yes (Other)
  Sender: FDA-Public Use
  Company Number: US-ASTRAZENECA-2006UW11860

PATIENT
  Age: 47 Year
  Sex: Female
  Weight: 79.8 kg

DRUGS (15)
  1. SEROQUEL [Suspect]
     Indication: MENTAL DISORDER
     Route: 048
     Dates: start: 20000228
  2. SEROQUEL [Suspect]
     Dosage: 200 MG TO 400 MG
     Route: 048
     Dates: start: 20020101
  3. ABILIFY [Concomitant]
     Route: 048
     Dates: start: 20050721
  4. ABILIFY [Concomitant]
  5. GEODON [Concomitant]
  6. HALDOL [Concomitant]
  7. RISPERDAL [Concomitant]
  8. ZYPREXA/SYMBYAX [Concomitant]
  9. MARIJUANA [Concomitant]
     Dosage: 2 PUFF DAILY
  10. PAXIL [Concomitant]
     Indication: SOMATISATION DISORDER
     Route: 048
     Dates: start: 19980611
  11. ULTRAM [Concomitant]
     Route: 048
     Dates: start: 19970912
  12. CELEBREX [Concomitant]
     Route: 048
     Dates: start: 20020306
  13. NEXIUM [Concomitant]
     Route: 048
     Dates: start: 20050721
  14. COGENTIN [Concomitant]
     Route: 048
     Dates: start: 20050721
  15. DIAZEPAM [Concomitant]
     Route: 048
     Dates: start: 20060316

REACTIONS (4)
  - DIABETES MELLITUS [None]
  - MENTAL DISORDER [None]
  - NEUROPATHY PERIPHERAL [None]
  - PROSTHESIS USER [None]
